FAERS Safety Report 15761899 (Version 1)
Quarter: 2018Q4

REPORT INFORMATION
  Report Type: Spontaneous
  Country: CA (occurrence: CA)
  Receive Date: 20181226
  Receipt Date: 20181226
  Transmission Date: 20190205
  Serious: Yes (Other)
  Sender: FDA-Public Use
  Company Number: CA-BAYER-2018-240652

PATIENT
  Age: 33 Year
  Sex: Female
  Weight: 170 kg

DRUGS (1)
  1. MIRENA [Suspect]
     Active Substance: LEVONORGESTREL
     Dosage: 20 MCG/24HR, CONT
     Route: 015

REACTIONS (5)
  - Acne [Unknown]
  - Irritability [Unknown]
  - Alopecia [Unknown]
  - Hyperhidrosis [Unknown]
  - Skin odour abnormal [Unknown]
